FAERS Safety Report 8559280-3 (Version None)
Quarter: 2012Q3

REPORT INFORMATION
  Report Type: 
  Country: None (occurrence: None)
  Receive Date: 20120802
  Receipt Date: 20120727
  Transmission Date: 20120928
  Serious: Yes (Other)
  Sender: FDA-Public Use
  Company Number: PHHY2010CA87249

PATIENT
  Sex: Female
  Weight: 50 kg

DRUGS (3)
  1. ZOLEDRONOC ACID [Suspect]
     Indication: OSTEOPOROSIS
     Dosage: UNK UKN, UNK
     Route: 042
     Dates: start: 20091218
  2. VITAMIN D [Concomitant]
     Dosage: 40 UKN, BID
     Dates: start: 19920401
  3. CALCIUM [Concomitant]
     Dosage: 500 UKN, BID
     Dates: start: 19920401

REACTIONS (2)
  - CREATININE RENAL CLEARANCE DECREASED [None]
  - RENAL FAILURE CHRONIC [None]
